FAERS Safety Report 8599594-4 (Version None)
Quarter: 2012Q3

REPORT INFORMATION
  Report Type: 
  Country: None (occurrence: None)
  Receive Date: 20120808
  Receipt Date: 20120808
  Transmission Date: 20120928
  Serious: Yes (Other)
  Sender: FDA-Public Use
  Company Number: None

PATIENT
  Age: 62 Year
  Sex: Female
  Weight: 108.8633 kg

DRUGS (1)
  1. PRAVASTATIN [Suspect]
     Indication: METABOLIC SYNDROME
     Dosage: 40MG 1X DAILY PO
     Route: 048
     Dates: start: 20110101, end: 20120803

REACTIONS (3)
  - DYSPEPSIA [None]
  - PRODUCT SUBSTITUTION ISSUE [None]
  - CHEST PAIN [None]
